FAERS Safety Report 6227446-3 (Version None)
Quarter: 2009Q2

REPORT INFORMATION
  Report Type: 
  Country: None (occurrence: None)
  Receive Date: 20090612
  Receipt Date: 20090608
  Transmission Date: 20091009
  Serious: Yes (Hospitalization, Other)
  Sender: FDA-Public Use
  Company Number: FR-BAYER-200829674GPV

PATIENT
  Age: 35 Year
  Sex: Female
  Weight: 71 kg

DRUGS (1)
  1. MIRENA [Suspect]
     Indication: CONTRACEPTION
     Route: 015
     Dates: start: 20060304

REACTIONS (4)
  - ABDOMINAL PAIN [None]
  - HAEMATOSALPINX [None]
  - OVARIAN CYST [None]
  - OVARIAN CYST TORSION [None]
